FAERS Safety Report 7853968-5 (Version None)
Quarter: 2011Q4

REPORT INFORMATION
  Report Type: 
  Country: None (occurrence: None)
  Receive Date: 20111026
  Receipt Date: 20111020
  Transmission Date: 20120403
  Serious: No
  Sender: FDA-Public Use
  Company Number: US-PFIZER INC-2011254486

PATIENT
  Sex: Male
  Weight: 97.506 kg

DRUGS (1)
  1. VIAGRA [Suspect]
     Indication: DISTURBANCE IN SEXUAL AROUSAL
     Dosage: UNK
     Route: 048
     Dates: start: 20080101

REACTIONS (1)
  - GINGIVAL PAIN [None]
